FAERS Safety Report 10217138 (Version 3)
Quarter: 2014Q3

REPORT INFORMATION
  Report Type: Report from Study
  Country: BR (occurrence: BR)
  Receive Date: 20140604
  Receipt Date: 20140714
  Transmission Date: 20150326
  Serious: Yes (Other)
  Sender: FDA-Public Use
  Company Number: PHHY2014BR066825

PATIENT
  Sex: Male

DRUGS (1)
  1. RITALIN LA [Suspect]
     Active Substance: METHYLPHENIDATE HYDROCHLORIDE
     Indication: DISTURBANCE IN ATTENTION
     Dosage: 1 DF, DAILY
     Route: 048

REACTIONS (3)
  - Mania [Not Recovered/Not Resolved]
  - Drug ineffective [Unknown]
  - Sleep disorder [Unknown]
